FAERS Safety Report 9199464 (Version 2)
Quarter: 2013Q2

REPORT INFORMATION
  Report Type: Spontaneous
  Country: US (occurrence: US)
  Receive Date: 20130329
  Receipt Date: 20130417
  Transmission Date: 20140414
  Serious: No
  Sender: FDA-Public Use
  Company Number: US-009507513-1303USA012658

PATIENT
  Age: 70 Year
  Sex: Male

DRUGS (1)
  1. JANUMET XR [Suspect]
     Indication: TYPE 2 DIABETES MELLITUS
     Dosage: 1000/50MG TAKEN TWICE DAILY
     Route: 048
     Dates: start: 20130311

REACTIONS (5)
  - Decreased appetite [Unknown]
  - Flatulence [Unknown]
  - Dysgeusia [Unknown]
  - Respiratory tract congestion [Unknown]
  - Sneezing [Unknown]
